FAERS Safety Report 23232265 (Version 2)
Quarter: 2023Q4

REPORT INFORMATION
  Report Type: Report from Study
  Country: JP (occurrence: JP)
  Receive Date: 20231127
  Receipt Date: 20231218
  Transmission Date: 20240110
  Serious: Yes (Life-Threatening, Other)
  Sender: FDA-Public Use
  Company Number: JP-SAKK-2023SA349547AA

PATIENT
  Age: 83 Year
  Sex: Female
  Weight: 47.5 kg

DRUGS (15)
  1. CAPLACIZUMAB [Suspect]
     Active Substance: CAPLACIZUMAB
     Indication: Haemolytic uraemic syndrome
     Dosage: 10 MG, 1X
     Route: 042
     Dates: start: 20230706, end: 20230706
  2. CAPLACIZUMAB [Suspect]
     Active Substance: CAPLACIZUMAB
     Indication: Haemolytic uraemic syndrome
     Dosage: 10 MG, 1X
     Route: 042
     Dates: start: 20230706, end: 20230706
  3. CAPLACIZUMAB [Suspect]
     Active Substance: CAPLACIZUMAB
     Indication: Haemolytic uraemic syndrome
     Dosage: 10 MG, 1X
     Route: 042
     Dates: start: 20230706, end: 20230706
  4. CAPLACIZUMAB [Suspect]
     Active Substance: CAPLACIZUMAB
     Indication: Haemolytic uraemic syndrome
     Dosage: 10 MG, 1X
     Route: 042
     Dates: start: 20230706, end: 20230706
  5. CAPLACIZUMAB [Suspect]
     Active Substance: CAPLACIZUMAB
     Dosage: 10 MG, 1X
     Route: 058
     Dates: start: 20230706, end: 20230706
  6. CAPLACIZUMAB [Suspect]
     Active Substance: CAPLACIZUMAB
     Dosage: 10 MG, 1X
     Route: 058
     Dates: start: 20230706, end: 20230706
  7. CAPLACIZUMAB [Suspect]
     Active Substance: CAPLACIZUMAB
     Dosage: 10 MG, 1X
     Route: 058
     Dates: start: 20230706, end: 20230706
  8. CAPLACIZUMAB [Suspect]
     Active Substance: CAPLACIZUMAB
     Dosage: 10 MG, 1X
     Route: 058
     Dates: start: 20230706, end: 20230706
  9. CAPLACIZUMAB [Suspect]
     Active Substance: CAPLACIZUMAB
     Dosage: 10 MG, QD (DURING THE PLASMA EXCHANGE PERIOD)
     Route: 058
     Dates: start: 20230707, end: 20230709
  10. CAPLACIZUMAB [Suspect]
     Active Substance: CAPLACIZUMAB
     Dosage: 10 MG, QD (DURING THE PLASMA EXCHANGE PERIOD)
     Route: 058
     Dates: start: 20230707, end: 20230709
  11. CAPLACIZUMAB [Suspect]
     Active Substance: CAPLACIZUMAB
     Dosage: 10 MG, QD (DURING THE PLASMA EXCHANGE PERIOD)
     Route: 058
     Dates: start: 20230707, end: 20230709
  12. CAPLACIZUMAB [Suspect]
     Active Substance: CAPLACIZUMAB
     Dosage: 10 MG, QD (DURING THE PLASMA EXCHANGE PERIOD)
     Route: 058
     Dates: start: 20230707, end: 20230709
  13. METHYLPREDNISOLONE [Concomitant]
     Active Substance: METHYLPREDNISOLONE
     Indication: Haemolytic uraemic syndrome
     Dosage: 1 G
     Route: 065
     Dates: start: 20230705, end: 20230707
  14. AMLODIPINE [Concomitant]
     Active Substance: AMLODIPINE BESYLATE
     Indication: Product used for unknown indication
     Dosage: 5 MG/DAY
     Route: 065
  15. PREDNISOLONE [Concomitant]
     Active Substance: PREDNISOLONE
     Indication: Haemolytic uraemic syndrome
     Dosage: 40 MG, QD
     Route: 065
     Dates: start: 20230708, end: 20230710

REACTIONS (1)
  - Melaena [Recovered/Resolved]

NARRATIVE: CASE EVENT DATE: 20230709
